FAERS Safety Report 11413687 (Version 1)
Quarter: 2015Q3

REPORT INFORMATION
  Report Type: Spontaneous
  Country: BR (occurrence: BR)
  Receive Date: 20150824
  Receipt Date: 20150824
  Transmission Date: 20151125
  Serious: Yes (Hospitalization, Other)
  Sender: FDA-Public Use
  Company Number: BR-PFIZER INC-2015278637

PATIENT
  Age: 82 Year
  Sex: Male
  Weight: 64 kg

DRUGS (7)
  1. ATENOLOL. [Suspect]
     Active Substance: ATENOLOL
     Indication: HEART RATE IRREGULAR
     Dosage: DAILY
     Route: 048
     Dates: start: 2006, end: 2014
  2. RIVOTRIL [Concomitant]
     Active Substance: CLONAZEPAM
     Dosage: DAILY
     Route: 048
     Dates: start: 2012
  3. AMLODIPINE [Concomitant]
     Active Substance: AMLODIPINE BESYLATE
     Dosage: UNK, DAILY
     Route: 048
     Dates: start: 2006
  4. OMEPRAZOLE. [Suspect]
     Active Substance: OMEPRAZOLE
     Indication: GASTRITIS PROPHYLAXIS
     Dosage: 20 MG, 1X/DAY
     Route: 048
     Dates: start: 2009
  5. ATORVASTATIN [Concomitant]
     Active Substance: ATORVASTATIN
     Indication: HYPERCHOLESTEROLAEMIA
     Dosage: UNK
     Route: 048
     Dates: start: 2013
  6. SOMALGIN CARDIO [Concomitant]
     Active Substance: ASPIRIN\DIHYDROXYALUMINUM AMINOACETATE ANHYDROUS\MAGNESIUM CARBONATE
     Indication: COAGULOPATHY
     Dosage: UNK, DAILY
     Route: 048
     Dates: start: 2013
  7. KOMBIGLYZE XR [Suspect]
     Active Substance: METFORMIN HYDROCHLORIDE\SAXAGLIPTIN HYDROCHLORIDE
     Indication: DIABETES MELLITUS
     Dosage: 5 MG/1000 MG DAILY
     Route: 048
     Dates: start: 2012

REACTIONS (3)
  - Coronary artery occlusion [Recovered/Resolved]
  - Heart rate decreased [Recovered/Resolved]
  - Diabetes mellitus [Recovered/Resolved]

NARRATIVE: CASE EVENT DATE: 2012
